FAERS Safety Report 5054303-0 (Version None)
Quarter: 2006Q3

REPORT INFORMATION
  Report Type: 
  Country: None (occurrence: None)
  Receive Date: 20060713
  Receipt Date: 20060705
  Transmission Date: 20061208
  Serious: Yes (Other)
  Sender: FDA-Public Use
  Company Number: 2006-05-2138

PATIENT
  Age: 37 Year
  Sex: Male
  Weight: 94.3482 kg

DRUGS (2)
  1. NASONEX [Suspect]
     Indication: RHINITIS ALLERGIC
     Dosage: 2PUFF/NARE QD NASAL SPRA
     Dates: start: 20050201, end: 20060417
  2. DIOVAN [Concomitant]

REACTIONS (1)
  - RETINOPATHY [None]
